FAERS Safety Report 8844110 (Version 1)
Quarter: 2012Q4

REPORT INFORMATION
  Report Type: 
  Country: US (occurrence: US)
  Receive Date: 20121016
  Receipt Date: 20121016
  Transmission Date: 20130627
  Serious: No
  Sender: FDA-Public Use
  Company Number: US-B.I. PHARMACEUTICALS,INC./RIDGEFIELD-2012-BP-25643BP

PATIENT
  Age: 88 Year
  Sex: Male
  Weight: 68 kg

DRUGS (5)
  1. PRADAXA [Suspect]
     Indication: ATRIAL FIBRILLATION
     Dosage: 300 mg
     Route: 048
  2. COREG [Concomitant]
     Indication: CARDIAC DISORDER
     Dosage: 25 mg
     Route: 048
  3. VASOTEC [Concomitant]
     Indication: HYPERTENSION
     Dosage: 10 mg
     Route: 048
  4. HYTRIN [Concomitant]
     Indication: PROSTATOMEGALY
     Dosage: 10 mg
     Route: 048
  5. XANAX [Concomitant]
     Indication: SLEEP DISORDER
     Dosage: 0.5 mg
     Route: 048

REACTIONS (1)
  - Incorrect dose administered [Recovered/Resolved]
